FAERS Safety Report 12695018 (Version 6)
Quarter: 2016Q4

REPORT INFORMATION
  Report Type: Report from Study
  Country: GB (occurrence: GB)
  Receive Date: 20160829
  Receipt Date: 20161216
  Transmission Date: 20170207
  Serious: Yes (Life-Threatening, Hospitalization, Other)
  Sender: FDA-Public Use
  Company Number: PHHO2016GB012329

PATIENT
  Age: 50 Year
  Sex: Male
  Weight: 79.9 kg

DRUGS (8)
  1. ATORVASTATIN [Concomitant]
     Active Substance: ATORVASTATIN
     Indication: BLOOD CHOLESTEROL INCREASED
     Dosage: 80 MG, OD
     Route: 065
     Dates: start: 20121222, end: 20160818
  2. RAMIPRIL. [Concomitant]
     Active Substance: RAMIPRIL
     Indication: HYPERTENSION
     Dosage: 10 MG, OD
     Route: 065
     Dates: start: 20141125, end: 20160817
  3. CLOPIDOGREL [Concomitant]
     Active Substance: CLOPIDOGREL BISULFATE
     Indication: MYOCARDIAL ISCHAEMIA
     Dosage: 75 MG, OD
     Route: 065
     Dates: start: 20141217, end: 20160818
  4. GTN [Concomitant]
     Active Substance: NITROGLYCERIN
     Indication: MYOCARDIAL ISCHAEMIA
     Dosage: 25 MG, BID
     Route: 065
     Dates: start: 20121222, end: 20160818
  5. METFORMIN [Concomitant]
     Active Substance: METFORMIN HYDROCHLORIDE
     Indication: DIABETES MELLITUS
     Dosage: 500 MG, OD
     Route: 065
     Dates: start: 20121231, end: 20160817
  6. LANSOPRAZOLE. [Concomitant]
     Active Substance: LANSOPRAZOLE
     Indication: PROPHYLAXIS
     Dosage: 30 MG, OD
     Route: 065
     Dates: start: 20121223, end: 20160818
  7. ACZ885 [Suspect]
     Active Substance: CANAKINUMAB
     Indication: CARDIOVASCULAR EVENT PROPHYLAXIS
     Dosage: 50 MG, UNK
     Route: 058
     Dates: start: 20130704
  8. BISOPROLOL [Concomitant]
     Active Substance: BISOPROLOL
     Indication: MYOCARDIAL ISCHAEMIA
     Dosage: 2-5 MG, OD
     Route: 065
     Dates: start: 20121225, end: 20160817

REACTIONS (1)
  - Gastroenteritis salmonella [Recovered/Resolved]

NARRATIVE: CASE EVENT DATE: 20160811
